FAERS Safety Report 7221382-1 (Version None)
Quarter: 2011Q1

REPORT INFORMATION
  Report Type: 
  Country: None (occurrence: None)
  Receive Date: 20110112
  Receipt Date: 20110105
  Transmission Date: 20110831
  Serious: Yes (Other)
  Sender: FDA-Public Use
  Company Number: JP-PFIZER INC-2011002090

PATIENT
  Age: 12 Year
  Sex: Female

DRUGS (2)
  1. CICLOSPORIN [Concomitant]
  2. METHYLPREDNISOLONE SODIUM SUCCINATE [Suspect]

REACTIONS (2)
  - VISUAL ACUITY REDUCED [None]
  - CHORIORETINAL DISORDER [None]
